FAERS Safety Report 9410457 (Version 4)
Quarter: 2013Q4

REPORT INFORMATION
  Report Type: Spontaneous
  Country: PE (occurrence: PE)
  Receive Date: 20130719
  Receipt Date: 20131008
  Transmission Date: 20140711
  Serious: Yes (Hospitalization, Other)
  Sender: FDA-Public Use
  Company Number: PE-AMGEN-PERSP2013048121

PATIENT
  Age: 9 Year
  Sex: Female

DRUGS (3)
  1. ENBREL [Suspect]
     Indication: JUVENILE IDIOPATHIC ARTHRITIS
     Dosage: UNK
     Route: 058
     Dates: start: 201210
  2. ARAVA [Concomitant]
     Dosage: 10 MG, 1X/DAY
     Route: 048
     Dates: start: 20130628
  3. METHOTREXATE [Concomitant]
     Dosage: UNK
     Route: 048

REACTIONS (7)
  - Joint swelling [Recovered/Resolved]
  - Pyrexia [Recovered/Resolved]
  - Dizziness [Recovered/Resolved]
  - Headache [Unknown]
  - Sleep disorder [Unknown]
  - Infection [Recovered/Resolved]
  - Oral candidiasis [Not Recovered/Not Resolved]
